FAERS Safety Report 10008511 (Version 1)
Quarter: 2014Q1

REPORT INFORMATION
  Report Type: Report from Study
  Country: US (occurrence: US)
  Receive Date: 20140313
  Receipt Date: 20140313
  Transmission Date: 20141002
  Serious: Yes (Hospitalization, Other)
  Sender: FDA-Public Use
  Company Number: US-ABBVIE-14P-163-1209032-00

PATIENT
  Sex: Male

DRUGS (4)
  1. HUMIRA [Suspect]
     Indication: RHEUMATOID ARTHRITIS
     Dates: start: 2006
  2. DIOVAN [Concomitant]
     Indication: HYPERTENSION
     Dosage: 320/25 MG
  3. TIAZAC ER [Concomitant]
     Indication: HYPERTENSION
  4. GLUCOPHAGE [Concomitant]
     Indication: DIABETES MELLITUS

REACTIONS (26)
  - Meniscus injury [Unknown]
  - Surgery [Unknown]
  - Surgery [Unknown]
  - Prostatectomy [Unknown]
  - Injection site pain [Not Recovered/Not Resolved]
  - Fear [Unknown]
  - Incorrect dose administered [Unknown]
  - Incorrect dose administered [Unknown]
  - Incorrect dose administered [Unknown]
  - Incorrect dose administered [Unknown]
  - Nervousness [Unknown]
  - Wrong technique in drug usage process [Unknown]
  - Arthralgia [Unknown]
  - Musculoskeletal pain [Unknown]
  - Pain [Unknown]
  - Wrong technique in drug usage process [Unknown]
  - Wrong technique in drug usage process [Unknown]
  - Wrong technique in drug usage process [Unknown]
  - Wrong technique in drug usage process [Unknown]
  - Device issue [Unknown]
  - Device issue [Unknown]
  - Device issue [Unknown]
  - Wrong technique in drug usage process [Unknown]
  - Incorrect dose administered [Unknown]
  - Device issue [Unknown]
  - Injection site pain [Unknown]
